FAERS Safety Report 5701490-4 (Version None)
Quarter: 2008Q2

REPORT INFORMATION
  Report Type: 
  Country: None (occurrence: None)
  Receive Date: 20080407
  Receipt Date: 20070710
  Transmission Date: 20081010
  Serious: Yes (Hospitalization)
  Sender: FDA-Public Use
  Company Number: STI-2008-00041

PATIENT
  Age: 3 Month
  Sex: Female
  Weight: 7.3 kg

DRUGS (2)
  1. CLOBETASOL (UNSPECIFIED) (CLOBETASOL PROPIONATE) (CLOBETASOL PROPIONAT [Suspect]
     Indication: DERMATITIS DIAPER
     Dosage: 7.5 MG PER WEEK APPLIED TO DIAPER AREA
  2. PREDNICARBATE (PREDNICARBATE) ( 0.25 %, CREAM) [Concomitant]

REACTIONS (10)
  - ADRENAL SUPPRESSION [None]
  - CUSHING'S SYNDROME [None]
  - DRUG ADMINISTRATION ERROR [None]
  - HEPATIC STEATOSIS [None]
  - HEPATOMEGALY [None]
  - HYPERCHOLESTEROLAEMIA [None]
  - RASH MACULO-PAPULAR [None]
  - TELANGIECTASIA [None]
  - TRANSAMINASES INCREASED [None]
  - WEIGHT INCREASED [None]
